FAERS Safety Report 8852331 (Version 1)
Quarter: 2012Q4

REPORT INFORMATION
  Report Type: 
  Country: US (occurrence: US)
  Receive Date: 20121022
  Receipt Date: 20121022
  Transmission Date: 20130627
  Serious: Yes (Other)
  Sender: FDA-Public Use
  Company Number: US-PFIZER INC-2012262190

PATIENT
  Age: 59 Year
  Sex: Female
  Weight: 82.09 kg

DRUGS (5)
  1. CHANTIX [Suspect]
     Indication: SMOKING CESSATION THERAPY
     Dosage: UNK
  2. EFFIENT [Suspect]
     Indication: CARDIOVASCULAR DISORDER
     Dosage: UNK
  3. ADVAIR [Concomitant]
     Indication: EMPHYSEMA
     Dosage: 250/50 ug, UNK
  4. PROVENTIL [Concomitant]
     Indication: EMPHYSEMA
     Dosage: UNK (four puffs in a day)
  5. ALBUTEROL [Concomitant]
     Indication: EMPHYSEMA
     Dosage: UNK, as needed

REACTIONS (3)
  - Lung disorder [Unknown]
  - Drug interaction [Unknown]
  - Contusion [Unknown]
